FAERS Safety Report 17066034 (Version 1)
Quarter: 2019Q4

REPORT INFORMATION
  Report Type: Report from Study
  Country: IT (occurrence: IT)
  Receive Date: 20191122
  Receipt Date: 20191122
  Transmission Date: 20200122
  Serious: Yes (Hospitalization, Other)
  Sender: FDA-Public Use
  Company Number: IT-MYLANLABS-2019M1112104

PATIENT
  Sex: Male
  Weight: 84.4 kg

DRUGS (9)
  1. CARDICOR [Concomitant]
     Active Substance: BISOPROLOL
     Dosage: UNK UNK,UNK
     Route: 065
     Dates: start: 20150203
  2. FUROSEMIDE. [Suspect]
     Active Substance: FUROSEMIDE
     Indication: CARDIAC FAILURE CHRONIC
     Dosage: 25 MG, QD
     Route: 065
     Dates: start: 201507, end: 20160910
  3. FUROSEMIDE. [Suspect]
     Active Substance: FUROSEMIDE
     Dosage: 10 MG, BID
     Route: 042
     Dates: start: 20160911, end: 20160912
  4. OMNIC [Concomitant]
     Active Substance: TAMSULOSIN HYDROCHLORIDE
     Dosage: UNK UNK,UNK
     Route: 065
     Dates: start: 200304
  5. TORVAST [Concomitant]
     Active Substance: ATORVASTATIN
     Dosage: UNK UNK,UNK
     Dates: start: 201502
  6. DUTASTERIDE. [Concomitant]
     Active Substance: DUTASTERIDE
     Dosage: UNK
     Route: 065
     Dates: start: 20190309
  7. COUMADIN [Concomitant]
     Active Substance: WARFARIN SODIUM
     Dosage: UNK UNK,UNK
     Route: 065
     Dates: start: 201503
  8. FUROSEMIDE. [Suspect]
     Active Substance: FUROSEMIDE
     Dosage: 50 MG, QD
     Route: 065
     Dates: start: 20160912
  9. PANTORC [Concomitant]
     Active Substance: PANTOPRAZOLE SODIUM
     Dosage: UNK UNK,UNK
     Route: 065
     Dates: start: 201502

REACTIONS (6)
  - Cardiac failure acute [Recovered/Resolved]
  - Dyspnoea [Unknown]
  - Respiratory failure [Unknown]
  - Pyrexia [Unknown]
  - Hypotension [Unknown]
  - Hypertension [Unknown]

NARRATIVE: CASE EVENT DATE: 20160911
